FAERS Safety Report 6228511-7 (Version None)
Quarter: 2009Q2

REPORT INFORMATION
  Report Type: 
  Country: None (occurrence: None)
  Receive Date: 20090612
  Receipt Date: 20090512
  Transmission Date: 20091009
  Serious: Yes (Other)
  Sender: FDA-Public Use
  Company Number: US-BAYER-200920259NA

PATIENT
  Age: 62 Year
  Sex: Female
  Weight: 99 kg

DRUGS (25)
  1. MAGNEVIST [Suspect]
     Indication: ANGIOGRAM
     Dates: start: 20020129, end: 20020129
  2. OMNISCAN [Suspect]
  3. OPTIMARK [Suspect]
  4. MULTIHANCE [Suspect]
  5. PROHANCE [Suspect]
  6. TACROLIMUS [Concomitant]
     Indication: TRANSPLANT EVALUATION
  7. CELLCEPT [Concomitant]
     Indication: TRANSPLANT EVALUATION
  8. SYNTHROID [Concomitant]
  9. PROTONIX [Concomitant]
  10. VALCYTE [Concomitant]
  11. NEPHROCAPS [Concomitant]
     Dosage: 1 DAILY
     Route: 048
  12. RENAGEL [Concomitant]
     Route: 048
  13. PHOSLO [Concomitant]
     Dosage: 2 TABLETS TID
     Route: 048
  14. NORVASC [Concomitant]
  15. CELEXA [Concomitant]
  16. SODIUM BICARBONATE [Concomitant]
  17. ZOCOR [Concomitant]
  18. EPOGEN [Concomitant]
  19. COUMADIN [Concomitant]
  20. MIDODRINE [Concomitant]
  21. NIFEREX FORTE [Concomitant]
  22. K DUR [Concomitant]
  23. PAXIL [Concomitant]
  24. NEPHROVITE [Concomitant]
  25. FOSRENOL [Concomitant]

REACTIONS (20)
  - BREAST FIBROSIS [None]
  - ERYTHEMA [None]
  - EXERCISE TOLERANCE DECREASED [None]
  - FIBROSIS [None]
  - JOINT CONTRACTURE [None]
  - JOINT CREPITATION [None]
  - JOINT RANGE OF MOTION DECREASED [None]
  - JOINT STIFFNESS [None]
  - MOBILITY DECREASED [None]
  - NEPHROGENIC SYSTEMIC FIBROSIS [None]
  - OEDEMA PERIPHERAL [None]
  - PAIN IN EXTREMITY [None]
  - PEAU D'ORANGE [None]
  - RASH MACULAR [None]
  - SKIN DISCOLOURATION [None]
  - SKIN FIBROSIS [None]
  - SKIN HYPERTROPHY [None]
  - SKIN INDURATION [None]
  - SKIN PLAQUE [None]
  - SKIN TIGHTNESS [None]
